FAERS Safety Report 5525388-X (Version None)
Quarter: 2007Q4

REPORT INFORMATION
  Report Type: 
  Country: None (occurrence: None)
  Receive Date: 20071126
  Receipt Date: 20071116
  Transmission Date: 20080405
  Serious: Yes (Hospitalization, Other)
  Sender: FDA-Public Use
  Company Number: US-ASTRAZENECA-2007UW07504

PATIENT
  Age: 23 Year
  Sex: Male
  Weight: 82.7 kg

DRUGS (10)
  1. SEROQUEL [Suspect]
     Indication: SCHIZOPHRENIA
     Dosage: 400MG-800MG
     Route: 048
     Dates: start: 20030808, end: 20060523
  2. HALDOL [Concomitant]
     Dates: start: 20040101, end: 20050101
  3. RISPERDAL [Concomitant]
     Dates: start: 20040101
  4. DEPAKOTE [Concomitant]
     Dosage: 250 MG AND 500 MG
     Dates: start: 20040101
  5. LITHOBID [Concomitant]
     Dates: start: 20040101, end: 20060101
  6. PERIACTIN [Concomitant]
     Dates: start: 20040101
  7. KLONOPIN [Concomitant]
     Dates: start: 20040101, end: 20060101
  8. CELEXA [Concomitant]
     Dates: start: 20050101
  9. COGENTIN (BENZATROPINE) [Concomitant]
     Dates: start: 20040101
  10. XANAX [Concomitant]
     Dates: start: 20050101

REACTIONS (5)
  - DECUBITUS ULCER [None]
  - PANCREATITIS [None]
  - RECTAL HAEMORRHAGE [None]
  - THERMAL BURN [None]
  - TYPE 2 DIABETES MELLITUS [None]
